FAERS Safety Report 25163020 (Version 2)
Quarter: 2025Q2

REPORT INFORMATION
  Report Type: Spontaneous
  Country: JP (occurrence: JP)
  Receive Date: 20250404
  Receipt Date: 20250430
  Transmission Date: 20250716
  Serious: Yes (Death, Hospitalization, Other)
  Sender: ALEXION PHARMACEUTICALS
  Company Number: JP-ASTRAZENECA-250032134_013120_P_1

PATIENT
  Age: 88 Year
  Weight: 57 kg

DRUGS (9)
  1. DURVALUMAB [Suspect]
     Active Substance: DURVALUMAB
     Indication: Hepatocellular carcinoma
     Dosage: 1500 MILLIGRAM, Q4W
  2. TREMELIMUMAB [Suspect]
     Active Substance: TREMELIMUMAB
     Indication: Hepatocellular carcinoma
  3. AMLODIPINE [Concomitant]
     Active Substance: AMLODIPINE BESYLATE
  4. AMARYL [Concomitant]
     Active Substance: GLIMEPIRIDE
  5. VONOPRAZAN FUMARATE [Concomitant]
     Active Substance: VONOPRAZAN FUMARATE
  6. LACTULOSE [Concomitant]
     Active Substance: LACTULOSE
  7. ZINC ACETATE [Concomitant]
     Active Substance: ZINC ACETATE
  8. SULFAMETHOXAZOLE\TRIMETHOPRIM [Concomitant]
     Active Substance: SULFAMETHOXAZOLE\TRIMETHOPRIM
  9. BONALON [Concomitant]
     Active Substance: ALENDRONATE SODIUM

REACTIONS (6)
  - Immune-mediated hepatitis [Fatal]
  - Pancreatitis [Unknown]
  - Renal impairment [Unknown]
  - Multiple organ dysfunction syndrome [Unknown]
  - Disorientation [Unknown]
  - General physical health deterioration [Unknown]
